FAERS Safety Report 23455493 (Version 1)
Quarter: 2024Q1

REPORT INFORMATION
  Report Type: Spontaneous
  Country: PL (occurrence: PL)
  Receive Date: 20240130
  Receipt Date: 20240130
  Transmission Date: 20240410
  Serious: Yes (Other)
  Sender: FDA-Public Use
  Company Number: None

PATIENT
  Age: 50 Year
  Sex: Female
  Weight: 69 kg

DRUGS (3)
  1. LEUCOVORIN CALCIUM [Suspect]
     Active Substance: LEUCOVORIN CALCIUM
     Indication: Colon cancer
     Dosage: CALCIUM FOLINATE IV,?358 (DOSE UNIT UNKNOWN)
     Route: 042
     Dates: start: 20170425, end: 20190625
  2. IRINOTECAN [Suspect]
     Active Substance: IRINOTECAN
     Indication: Colon cancer
     Dosage: 322.2 (DOSE UNIT UNKNOWN)
     Route: 042
     Dates: start: 20170425, end: 20190625
  3. FLUOROURACIL [Suspect]
     Active Substance: FLUOROURACIL
     Indication: Colon cancer
     Dosage: 1074 (DOSE UNIT UNKNOWN)
     Route: 042
     Dates: start: 20170425, end: 20190625

REACTIONS (1)
  - Neutropenia [Unknown]

NARRATIVE: CASE EVENT DATE: 20190709
